FAERS Safety Report 9587750 (Version 1)
Quarter: 2013Q4

REPORT INFORMATION
  Report Type: Spontaneous
  Country: US (occurrence: US)
  Receive Date: 20131003
  Receipt Date: 20131003
  Transmission Date: 20140711
  Serious: No
  Sender: FDA-Public Use
  Company Number: US-COVIDIEN/TYCO HEALTHCARE/MALLINCKRODT-T201303361

PATIENT
  Sex: Female
  Weight: 96.15 kg

DRUGS (5)
  1. EXALGO EXTENDED RELEASE [Suspect]
     Indication: PAIN
     Dosage: 2 TABS Q HS
     Route: 048
     Dates: start: 201301
  2. ZANAFLEX [Concomitant]
     Indication: MUSCLE SPASMS
     Dosage: UNK
  3. LORAZEPAM [Concomitant]
     Indication: ANXIETY
     Dosage: UNK
  4. LIMBREL [Concomitant]
     Indication: ARTHRITIS
     Dosage: UNK
  5. CYMBALTA [Concomitant]
     Indication: DEPRESSION
     Dosage: UNK

REACTIONS (2)
  - Oedema peripheral [Not Recovered/Not Resolved]
  - Pruritus [Not Recovered/Not Resolved]
